FAERS Safety Report 7142507-2 (Version None)
Quarter: 2010Q4

REPORT INFORMATION
  Report Type: 
  Country: None (occurrence: None)
  Receive Date: 20101207
  Receipt Date: 20101129
  Transmission Date: 20110411
  Serious: Yes (Hospitalization)
  Sender: FDA-Public Use
  Company Number: US-JNJFOC-20101200578

PATIENT
  Sex: Female
  Weight: 43 kg

DRUGS (2)
  1. INFLIXIMAB, RECOMBINANT [Suspect]
     Indication: CROHN'S DISEASE
     Route: 042
  2. HUMIRA [Concomitant]
     Indication: CROHN'S DISEASE

REACTIONS (1)
  - WEIGHT DECREASED [None]
